FAERS Safety Report 9911967 (Version 1)
Quarter: 2014Q1

REPORT INFORMATION
  Report Type: Spontaneous
  Country: US (occurrence: US)
  Receive Date: 20140219
  Receipt Date: 20140219
  Transmission Date: 20141002
  Serious: No
  Sender: FDA-Public Use
  Company Number: US-MYLANLABS-2013S1025312

PATIENT
  Sex: Female

DRUGS (1)
  1. EPIPEN [Suspect]
     Dates: start: 2012, end: 2012

REACTIONS (3)
  - Accidental exposure to product [Recovered/Resolved]
  - Pain in extremity [Recovered/Resolved]
  - Injection site pain [None]
